FAERS Safety Report 17225511 (Version 2)
Quarter: 2020Q1

REPORT INFORMATION
  Report Type: Spontaneous
  Country: US (occurrence: US)
  Receive Date: 20200102
  Receipt Date: 20200320
  Transmission Date: 20200409
  Serious: Yes (Other)
  Sender: FDA-Public Use
  Company Number: NVSC2019US081980

PATIENT
  Sex: Male

DRUGS (1)
  1. KYMRIAH [Suspect]
     Active Substance: TISAGENLECLEUCEL
     Indication: ACUTE LYMPHOCYTIC LEUKAEMIA
     Dosage: 1 DF, ONCE/SINGLE
     Route: 042

REACTIONS (6)
  - Haemorrhage [Unknown]
  - White blood cell count abnormal [Unknown]
  - Tumour lysis syndrome [Recovered/Resolved]
  - Pancytopenia [Unknown]
  - Blast cell count decreased [Unknown]
  - Acute lymphocytic leukaemia recurrent [Unknown]
